FAERS Safety Report 12439443 (Version 1)
Quarter: 2016Q2

REPORT INFORMATION
  Report Type: Spontaneous
  Country: US (occurrence: US)
  Receive Date: 20160606
  Receipt Date: 20160606
  Transmission Date: 20160815
  Serious: No
  Sender: FDA-Public Use
  Company Number: US-ASTRAZENECA-2016SE57010

PATIENT
  Age: 78 Year
  Sex: Female
  Weight: 55.3 kg

DRUGS (5)
  1. CRESTOR [Suspect]
     Active Substance: ROSUVASTATIN CALCIUM
     Indication: BLOOD CHOLESTEROL ABNORMAL
     Route: 048
     Dates: start: 201604, end: 20160516
  2. CRESTOR [Suspect]
     Active Substance: ROSUVASTATIN CALCIUM
     Indication: BLOOD CHOLESTEROL ABNORMAL
     Route: 048
     Dates: end: 201604
  3. ALBUTEROL NEBULIZER [Concomitant]
     Active Substance: ALBUTEROL
     Indication: ASTHMA
     Dosage: DAILY
     Route: 055
     Dates: start: 2007
  4. ALBUTEROL. [Concomitant]
     Active Substance: ALBUTEROL
     Indication: ASTHMA
     Dosage: AS REQUIRED
     Route: 055
     Dates: start: 198110
  5. LORAZEPAM. [Concomitant]
     Active Substance: LORAZEPAM
     Indication: MENTAL DISORDER
     Route: 048

REACTIONS (6)
  - Alopecia [Unknown]
  - Thyroid disorder [Unknown]
  - Pruritus [Unknown]
  - Memory impairment [Unknown]
  - Blood cholesterol increased [Unknown]
  - Body height decreased [Unknown]

NARRATIVE: CASE EVENT DATE: 2014
